FAERS Safety Report 20074083 (Version 2)
Quarter: 2021Q4

REPORT INFORMATION
  Report Type: Report from Study
  Country: US (occurrence: US)
  Receive Date: 20211116
  Receipt Date: 20211119
  Transmission Date: 20220303
  Serious: No
  Sender: FDA-Public Use
  Company Number: US-NOVARTISTESTPH-NVSC2021US261779

PATIENT
  Sex: Female

DRUGS (1)
  1. PROMACTA [Suspect]
     Active Substance: ELTROMBOPAG OLAMINE
     Indication: Product used for unknown indication
     Dosage: 25 MG
     Route: 065

REACTIONS (6)
  - Platelet count increased [Unknown]
  - Alopecia [Unknown]
  - Condition aggravated [Unknown]
  - COVID-19 [Unknown]
  - No adverse event [Unknown]
  - Unevaluable event [Unknown]
